FAERS Safety Report 7275709-5 (Version None)
Quarter: 2011Q1

REPORT INFORMATION
  Report Type: 
  Country: None (occurrence: None)
  Receive Date: 20110131
  Receipt Date: 20110114
  Transmission Date: 20110831
  Serious: Yes (Life-Threatening, Hospitalization)
  Sender: FDA-Public Use
  Company Number: 023639

PATIENT
  Age: 72 Year
  Sex: Male

DRUGS (2)
  1. LEVETIRACETAM [Suspect]
     Indication: EPILEPSY
     Dosage: 1000 MG, STABLE DOSE
     Dates: start: 20050725, end: 20060108
  2. NEURONTIN [Concomitant]

REACTIONS (1)
  - DIARRHOEA [None]
